FAERS Safety Report 10264932 (Version 1)
Quarter: 2014Q2

REPORT INFORMATION
  Report Type: Spontaneous
  Country: US (occurrence: None)
  Receive Date: 20140625
  Receipt Date: 20140625
  Transmission Date: 20141212
  Serious: Yes (Other)
  Sender: FDA-Public Use
  Company Number: None

PATIENT
  Age: 60 Year
  Sex: Male
  Weight: 79 kg

DRUGS (1)
  1. ZOLEDRONIC [Suspect]
     Indication: BONE NEOPLASM
     Dosage: 4 MG, OTHER, IV?
     Route: 042
     Dates: start: 20111122, end: 20131122

REACTIONS (1)
  - Pain [None]
